FAERS Safety Report 9599430 (Version 1)
Quarter: 2013Q4

REPORT INFORMATION
  Report Type: Spontaneous
  Country: US (occurrence: US)
  Receive Date: 20131004
  Receipt Date: 20131004
  Transmission Date: 20140711
  Serious: No
  Sender: FDA-Public Use
  Company Number: US-AMGEN-USASP2013029415

PATIENT
  Age: 62 Year
  Sex: Male

DRUGS (6)
  1. ENBREL [Suspect]
     Indication: PRODUCT USED FOR UNKNOWN INDICATION
     Dosage: 50 MG, 2 TIMES/WK
  2. MULTIVITAMIN                       /00097801/ [Concomitant]
  3. METOPROLOL [Concomitant]
     Dosage: 25 MG, UNK
  4. OMEPRAZOLE                         /00661202/ [Concomitant]
     Dosage: 10 MG, UNK
  5. AMANTADINE [Concomitant]
     Dosage: 100 MG, UNK
  6. TRIAMCINOLON                       /00031901/ [Concomitant]
     Dosage: 0.1%

REACTIONS (2)
  - Therapeutic response decreased [Unknown]
  - Psoriasis [Unknown]
